FAERS Safety Report 6702960-2 (Version None)
Quarter: 2010Q2

REPORT INFORMATION
  Report Type: 
  Country: None (occurrence: None)
  Receive Date: 20100429
  Receipt Date: 20100422
  Transmission Date: 20101027
  Serious: Yes (Hospitalization, Other)
  Sender: FDA-Public Use
  Company Number: US-AMGEN-QUU397029

PATIENT
  Sex: Female
  Weight: 43.6 kg

DRUGS (4)
  1. ENBREL [Suspect]
     Indication: RHEUMATOID ARTHRITIS
     Route: 058
     Dates: start: 19990101, end: 20100202
  2. PROPRANOLOL [Concomitant]
  3. VITAMIN D [Concomitant]
  4. OSCAL [Concomitant]

REACTIONS (4)
  - CARDIOMEGALY [None]
  - LEUKOPENIA [None]
  - MYCOBACTERIUM FORTUITUM INFECTION [None]
  - PERICARDIAL EFFUSION [None]
